FAERS Safety Report 5193132-4 (Version None)
Quarter: 2006Q4

REPORT INFORMATION
  Report Type: 
  Country: None (occurrence: None)
  Receive Date: 20061228
  Receipt Date: 20060519
  Transmission Date: 20070319
  Serious: No
  Sender: FDA-Public Use
  Company Number: US-GLAXOSMITHKLINE-A0606350A

PATIENT
  Sex: Male

DRUGS (6)
  1. AVODART [Suspect]
     Indication: BENIGN PROSTATIC HYPERPLASIA
     Dosage: 5MG PER DAY
     Route: 048
     Dates: start: 20050901
  2. FLOMAX [Concomitant]
  3. BACLOFEN [Concomitant]
  4. PAROXETINE HCL [Concomitant]
  5. LISINOPRIL [Concomitant]
  6. VERPAMIL [Concomitant]

REACTIONS (1)
  - DRUG INEFFECTIVE [None]
